FAERS Safety Report 4586628-7 (Version None)
Quarter: 2005Q1

REPORT INFORMATION
  Report Type: 
  Country: None (occurrence: None)
  Receive Date: 20050218
  Receipt Date: 20040805
  Transmission Date: 20050727
  Serious: No
  Sender: FDA-Public Use
  Company Number: US-BRISTOL-MYERS SQUIBB COMPANY-12662003

PATIENT
  Age: 56 Year
  Sex: Female
  Weight: 90 kg

DRUGS (8)
  1. TAXOL [Suspect]
     Indication: OVARIAN CANCER
     Dosage: 1ST DOSE 400 MG 2ND DOSE 90 MG
     Route: 042
     Dates: start: 20040301
  2. CARBOPLATIN [Concomitant]
     Route: 042
     Dates: start: 20040301
  3. DECADRON [Concomitant]
     Indication: PREMEDICATION
     Dosage: 8 MG ON 29-JUL
     Route: 042
  4. ZANTAC [Concomitant]
     Indication: PREMEDICATION
     Route: 042
  5. BENADRYL [Concomitant]
     Indication: PREMEDICATION
     Route: 042
  6. FOLIC ACID [Concomitant]
  7. NIACIN [Concomitant]
  8. CEFTIN [Concomitant]

REACTIONS (2)
  - INSOMNIA [None]
  - MIGRAINE [None]
